FAERS Safety Report 4518081-3 (Version None)
Quarter: 2004Q4

REPORT INFORMATION
  Report Type: 
  Country: None (occurrence: None)
  Receive Date: 20041203
  Receipt Date: 20041124
  Transmission Date: 20050328
  Serious: Yes (Other)
  Sender: FDA-Public Use
  Company Number: FR-GLAXOSMITHKLINE-B0358427A

PATIENT
  Age: 75 Year
  Sex: Male

DRUGS (1)
  1. ZOPHREN [Suspect]
     Indication: NAUSEA
     Route: 065
     Dates: start: 20041101, end: 20041101

REACTIONS (3)
  - DEPRESSED LEVEL OF CONSCIOUSNESS [None]
  - MEDICATION ERROR [None]
  - PROTHROMBIN TIME PROLONGED [None]
